FAERS Safety Report 4281313-3 (Version None)
Quarter: 2004Q1

REPORT INFORMATION
  Report Type: 
  Country: None (occurrence: None)
  Receive Date: 20040129
  Receipt Date: 20030522
  Transmission Date: 20041129
  Serious: Yes (Hospitalization)
  Sender: FDA-Public Use
  Company Number: BR-ROCHE-338449

PATIENT
  Age: 49 Year
  Sex: Male
  Weight: 69.3 kg

DRUGS (27)
  1. DACLIZUMAB [Suspect]
     Route: 042
     Dates: start: 20030403, end: 20030403
  2. DACLIZUMAB [Suspect]
     Dosage: FOR 4 DOSES.
     Route: 042
     Dates: start: 20030416, end: 20030529
  3. MYCOPHENOLATE MOFETIL [Suspect]
     Route: 048
     Dates: start: 20030403
  4. MYCOPHENOLATE MOFETIL [Suspect]
     Route: 048
     Dates: start: 20030518
  5. MYCOPHENOLATE MOFETIL [Suspect]
     Route: 048
     Dates: start: 20030610
  6. MYCOPHENOLATE MOFETIL [Suspect]
     Route: 048
     Dates: start: 20030617
  7. SIROLIMUS [Suspect]
     Route: 048
     Dates: start: 20030403
  8. SIROLIMUS [Suspect]
     Route: 048
     Dates: start: 20030406
  9. SIROLIMUS [Suspect]
     Route: 048
     Dates: start: 20030417
  10. SIROLIMUS [Suspect]
     Route: 048
     Dates: start: 20030610
  11. PREDNISONE [Suspect]
     Route: 048
     Dates: start: 20030405
  12. PREDNISONE [Suspect]
     Route: 048
     Dates: start: 20030410
  13. PREDNISONE [Suspect]
     Route: 048
     Dates: start: 20030417
  14. PREDNISONE [Suspect]
     Route: 048
     Dates: start: 20030430
  15. PREDNISONE [Suspect]
     Route: 048
     Dates: start: 20030709
  16. PREDNISONE [Suspect]
     Route: 048
     Dates: start: 20030806
  17. PREDNISONE [Suspect]
     Route: 048
     Dates: start: 20030829
  18. PREDNISONE [Suspect]
     Route: 048
     Dates: start: 20030917
  19. METHYLPREDNISOLONE [Suspect]
     Route: 042
     Dates: start: 20030402
  20. METHYLPREDNISOLONE [Suspect]
     Route: 042
     Dates: start: 20030403
  21. METHYLPREDNISOLONE [Suspect]
     Route: 042
     Dates: start: 20030404
  22. OMEPRAZOL [Concomitant]
     Route: 048
     Dates: start: 20030519
  23. SULFAMETHOXAZOLE + TRIMETHOPRIM [Concomitant]
     Route: 048
     Dates: start: 20030407
  24. AMLODIPINE BESYLATE [Concomitant]
     Route: 048
     Dates: start: 20030406, end: 20030601
  25. FUROSEMIDE [Concomitant]
     Route: 048
     Dates: start: 20030601
  26. CAPTOPRIL [Concomitant]
     Route: 048
     Dates: start: 20030601
  27. SINVASTACOR [Concomitant]
     Dates: start: 20030708

REACTIONS (4)
  - BACTERIA URINE [None]
  - CYTOMEGALOVIRUS INFECTION [None]
  - LYMPHOCELE [None]
  - PYREXIA [None]
